FAERS Safety Report 13674997 (Version 1)
Quarter: 2017Q2

REPORT INFORMATION
  Report Type: Spontaneous
  Country: US (occurrence: US)
  Receive Date: 20170621
  Receipt Date: 20170621
  Transmission Date: 20170830
  Serious: No
  Sender: FDA-Public Use
  Company Number: US-PERRIGO-16US022671

PATIENT
  Age: 47 Year
  Sex: Female
  Weight: 58.96 kg

DRUGS (2)
  1. RANITIDINE HYDROCHLORIDE. [Suspect]
     Active Substance: RANITIDINE HYDROCHLORIDE
     Indication: DYSPEPSIA
     Dosage: 150 MG, PRN
     Route: 048
     Dates: start: 2014
  2. RANITIDINE HYDROCHLORIDE. [Suspect]
     Active Substance: RANITIDINE HYDROCHLORIDE
     Indication: WRONG DRUG ADMINISTERED
     Dosage: 900 MG, SINGLE
     Route: 048
     Dates: start: 20161208, end: 20161208

REACTIONS (3)
  - Dyspepsia [Recovered/Resolved]
  - Overdose [Recovered/Resolved]
  - Wrong drug administered [Recovered/Resolved]

NARRATIVE: CASE EVENT DATE: 20161208
